APPROVED DRUG PRODUCT: LUPRON DEPOT
Active Ingredient: LEUPROLIDE ACETATE
Strength: 45MG
Dosage Form/Route: INJECTABLE;INJECTION
Application: N020517 | Product #003
Applicant: ABBVIE ENDOCRINE INC
Approved: Jun 17, 2011 | RLD: Yes | RS: Yes | Type: RX

PATENTS:
Patent 8921326 | Expires: Feb 5, 2031
Patent 9617303 | Expires: Mar 22, 2028